FAERS Safety Report 8578674-3 (Version None)
Quarter: 2012Q3

REPORT INFORMATION
  Report Type: 
  Country: None (occurrence: None)
  Receive Date: 20120808
  Receipt Date: 20120730
  Transmission Date: 20120928
  Serious: Yes (Hospitalization, Other)
  Sender: FDA-Public Use
  Company Number: PHHY2012BR045539

PATIENT
  Sex: Female

DRUGS (6)
  1. CARVEDILOL [Concomitant]
     Dosage: 2 DF, UNK
  2. ISOSORBIDE MONONITRATE [Concomitant]
     Indication: CARDIAC DISORDER
     Dosage: 2 DF, QD
  3. ONBREZ [Suspect]
     Indication: BRONCHITIS
     Dosage: 1 DF, QD
     Dates: start: 20120517
  4. SPIRIVA [Concomitant]
     Indication: ASTHMA
  5. ALDACTONE [Concomitant]
     Indication: CARDIAC DISORDER
     Dosage: 1 DF, QD
  6. FORMOTEROL FUMARATE [Suspect]
     Indication: ASTHMA
     Dosage: 2 DF, QD

REACTIONS (1)
  - PNEUMONIA [None]
